FAERS Safety Report 5108141-0 (Version None)
Quarter: 2006Q3

REPORT INFORMATION
  Report Type: 
  Country: None (occurrence: None)
  Receive Date: 20060919
  Receipt Date: 20060912
  Transmission Date: 20061208
  Serious: Yes (Hospitalization)
  Sender: FDA-Public Use
  Company Number: JP-GLAXOSMITHKLINE-B0438123A

PATIENT
  Age: 61 Year
  Sex: Female
  Weight: 46 kg

DRUGS (16)
  1. ALKERAN [Suspect]
     Indication: STEM CELL TRANSPLANT
     Route: 042
     Dates: start: 20060603, end: 20060604
  2. GRAN [Concomitant]
     Route: 042
     Dates: start: 20060607, end: 20060618
  3. KYTRIL [Concomitant]
     Route: 042
     Dates: start: 20060603, end: 20060604
  4. SELBEX [Concomitant]
     Route: 048
     Dates: start: 20060603
  5. BACTRIM [Concomitant]
     Route: 048
     Dates: start: 20060603, end: 20060605
  6. BACTRIM [Concomitant]
     Route: 048
     Dates: start: 20060618
  7. ZYLORIC [Concomitant]
     Route: 048
     Dates: start: 20060603, end: 20060605
  8. MAGLAX [Concomitant]
     Route: 048
     Dates: start: 20060603
  9. ZOVIRAX [Concomitant]
     Route: 048
     Dates: start: 20060603, end: 20060621
  10. LEVOFLOXACIN [Concomitant]
     Route: 048
     Dates: start: 20060603, end: 20060621
  11. LEVOFLOXACIN [Concomitant]
     Route: 048
     Dates: start: 20060718, end: 20060723
  12. PRODIF [Concomitant]
     Route: 042
     Dates: start: 20060609, end: 20060618
  13. OMEPRAZOLE [Concomitant]
     Route: 042
     Dates: start: 20060609, end: 20060615
  14. DIFLUCAN [Concomitant]
     Route: 048
     Dates: start: 20060621, end: 20060623
  15. GASTER D [Concomitant]
     Route: 048
     Dates: start: 20060623
  16. PL [Concomitant]
     Route: 048
     Dates: start: 20060718, end: 20060723

REACTIONS (1)
  - FEBRILE NEUTROPENIA [None]
